FAERS Safety Report 18180324 (Version 1)
Quarter: 2020Q3

REPORT INFORMATION
  Report Type: Spontaneous
  Country: US (occurrence: US)
  Receive Date: 20200821
  Receipt Date: 20200821
  Transmission Date: 20201103
  Serious: No
  Sender: FDA-Public Use
  Company Number: None

PATIENT
  Age: 53 Year
  Sex: Female
  Weight: 58.5 kg

DRUGS (19)
  1. GLATIRAMER ACETATE 40MG/1ML [Suspect]
     Active Substance: GLATIRAMER ACETATE
     Indication: MULTIPLE SCLEROSIS
     Dosage: ?          QUANTITY:1 INJECTION(S);OTHER FREQUENCY:MWF EVERY MORNING;OTHER ROUTE:SUBCUTANEOUSLY?
  2. RITALIN [Concomitant]
     Active Substance: METHYLPHENIDATE HYDROCHLORIDE
  3. OMEGA [Concomitant]
  4. TESTOSTERONE CREAM [Concomitant]
     Active Substance: TESTOSTERONE
  5. VITAMIN D3 [Concomitant]
     Active Substance: CHOLECALCIFEROL
  6. VITAMIN E [Concomitant]
     Active Substance: .ALPHA.-TOCOPHEROL
  7. GINGER ROOT [Concomitant]
     Active Substance: GINGER
  8. EVENING PRIMOSE [Concomitant]
  9. AMITRIPTYLINE [Concomitant]
     Active Substance: AMITRIPTYLINE
  10. BIOTIN [Concomitant]
     Active Substance: BIOTIN
  11. MVI WITHOUT IRON [Concomitant]
  12. BIRTH CONTROL [Concomitant]
     Active Substance: UNSPECIFIED INGREDIENT
  13. ADDYI [Concomitant]
     Active Substance: FLIBANSERIN
  14. TUMERIC [Concomitant]
     Active Substance: HERBALS\TURMERIC
  15. COD LIVER OIL [Concomitant]
     Active Substance: COD LIVER OIL
  16. LEXAPRO [Concomitant]
     Active Substance: ESCITALOPRAM OXALATE
  17. BUSPAR [Concomitant]
     Active Substance: BUSPIRONE HYDROCHLORIDE
  18. GABAPENTIN. [Concomitant]
     Active Substance: GABAPENTIN
  19. ALPHA LIPOIC ACID [Concomitant]
     Active Substance: .ALPHA.-LIPOIC ACID

REACTIONS (6)
  - Cough [None]
  - Injection site pain [None]
  - Erythema [None]
  - Pain [None]
  - Dyspnoea [None]
  - Injection site urticaria [None]

NARRATIVE: CASE EVENT DATE: 20200821
